FAERS Safety Report 5264611-6 (Version None)
Quarter: 2007Q1

REPORT INFORMATION
  Report Type: 
  Country: None (occurrence: None)
  Receive Date: 20070314
  Receipt Date: 20070309
  Transmission Date: 20070707
  Serious: Yes (Life-Threatening, Disabling)
  Sender: FDA-Public Use
  Company Number: US-BAYER-200613453BWH

PATIENT
  Age: 70 Year
  Sex: Female

DRUGS (7)
  1. NEXAVAR [Suspect]
     Indication: RENAL CELL CARCINOMA STAGE UNSPECIFIED
     Dosage: TOTAL DAILY DOSE: 400 MG  UNIT DOSE: 200 MG
     Route: 048
     Dates: start: 20060626, end: 20060712
  2. NEXAVAR [Suspect]
     Dosage: TOTAL DAILY DOSE: 200 MG  UNIT DOSE: 200 MG
     Route: 048
     Dates: start: 20060716
  3. NEXAVAR [Suspect]
     Dosage: TOTAL DAILY DOSE: 400 MG  UNIT DOSE: 200 MG
     Route: 048
  4. NEXAVAR [Suspect]
     Dosage: TOTAL DAILY DOSE: 800 MG  UNIT DOSE: 200 MG
     Route: 048
     Dates: start: 20060416, end: 20060617
  5. PINDOLOL [Concomitant]
     Indication: HYPERTENSION
  6. PROTONIX [Concomitant]
  7. THALIDOMIDE THERAPY [Concomitant]
     Dates: start: 20050801, end: 20060301

REACTIONS (15)
  - ALOPECIA [None]
  - BLISTER [None]
  - CONSTIPATION [None]
  - DECREASED APPETITE [None]
  - DYSGEUSIA [None]
  - DYSPHONIA [None]
  - DYSURIA [None]
  - ERYTHEMA [None]
  - HYPERTENSION [None]
  - PALMAR-PLANTAR ERYTHRODYSAESTHESIA SYNDROME [None]
  - PRURITUS [None]
  - SKIN LESION [None]
  - STOMATITIS [None]
  - WEIGHT DECREASED [None]
  - WHEELCHAIR USER [None]
